FAERS Safety Report 5429893-6 (Version None)
Quarter: 2007Q3

REPORT INFORMATION
  Report Type: 
  Country: None (occurrence: None)
  Receive Date: 20070827
  Receipt Date: 20070810
  Transmission Date: 20080115
  Serious: Yes (Other)
  Sender: FDA-Public Use
  Company Number: 2007RR-09196

PATIENT
  Age: 43 Year
  Sex: Female

DRUGS (1)
  1. MINOCYCLINE HCL [Suspect]

REACTIONS (5)
  - AUTOIMMUNE THYROIDITIS [None]
  - NEOPLASM MALIGNANT [None]
  - ODYNOPHAGIA [None]
  - PAPILLARY THYROID CANCER [None]
  - THYROID NEOPLASM [None]
